FAERS Safety Report 8160281-8 (Version None)
Quarter: 2012Q1

REPORT INFORMATION
  Report Type: 
  Country: None (occurrence: None)
  Receive Date: 20120223
  Receipt Date: 20120223
  Transmission Date: 20120608
  Serious: Yes (Other)
  Sender: FDA-Public Use
  Company Number: None

PATIENT
  Age: 10 Year
  Sex: Female
  Weight: 36.2 kg

DRUGS (2)
  1. NOVOLIN R [Suspect]
     Indication: BLOOD BICARBONATE DECREASED
     Dosage: 0.05 UNITS/KG/HR
     Route: 041
     Dates: start: 20120221, end: 20120221
  2. NOVOLIN R [Suspect]
     Indication: TYPE 1 DIABETES MELLITUS
     Dosage: 0.05 UNITS/KG/HR
     Route: 041
     Dates: start: 20120221, end: 20120221

REACTIONS (3)
  - DYSPNOEA [None]
  - URTICARIA [None]
  - DRUG HYPERSENSITIVITY [None]
